FAERS Safety Report 24805087 (Version 1)
Quarter: 2025Q1

REPORT INFORMATION
  Report Type: Spontaneous
  Country: CN (occurrence: CN)
  Receive Date: 20250103
  Receipt Date: 20250103
  Transmission Date: 20250409
  Serious: Yes (Hospitalization, Other)
  Sender: ASTELLAS
  Company Number: CN-ASTELLAS-2024-AER-027171

PATIENT
  Age: 14 Year
  Sex: Male

DRUGS (11)
  1. TACROLIMUS [Suspect]
     Active Substance: TACROLIMUS
     Indication: Stem cell transplant
     Route: 065
     Dates: start: 20230413
  2. TACROLIMUS [Suspect]
     Active Substance: TACROLIMUS
     Route: 065
     Dates: start: 20240313
  3. MYCOPHENOLATE MOFETIL [Suspect]
     Active Substance: MYCOPHENOLATE MOFETIL
     Indication: Stem cell transplant
     Route: 065
     Dates: start: 20240321, end: 20240323
  4. IDARUBICIN [Suspect]
     Active Substance: IDARUBICIN
     Indication: Stem cell transplant
     Route: 065
     Dates: start: 2023, end: 20240323
  5. CLADRIBINE [Suspect]
     Active Substance: CLADRIBINE
     Indication: Stem cell transplant
     Route: 065
     Dates: start: 2023, end: 20240323
  6. CYTARABINE [Suspect]
     Active Substance: CYTARABINE
     Indication: Stem cell transplant
     Route: 065
     Dates: start: 2023, end: 20240323
  7. RUXOLITINIB [Suspect]
     Active Substance: RUXOLITINIB
     Indication: Stem cell transplant
     Route: 065
     Dates: start: 202312
  8. RUXOLITINIB [Suspect]
     Active Substance: RUXOLITINIB
     Route: 065
     Dates: start: 20240321, end: 20240323
  9. CYCLOPHOSPHAMIDE [Suspect]
     Active Substance: CYCLOPHOSPHAMIDE
     Indication: Stem cell transplant
     Route: 065
     Dates: start: 2023, end: 20240323
  10. HUMAN IMMUNOGLOBULIN G [Suspect]
     Active Substance: HUMAN IMMUNOGLOBULIN G
     Indication: Stem cell transplant
     Route: 042
     Dates: start: 2023, end: 20240323
  11. CYCLOSPORINE [Suspect]
     Active Substance: CYCLOSPORINE
     Indication: Stem cell transplant
     Route: 065
     Dates: start: 2023, end: 20240323

REACTIONS (7)
  - Red blood cell morphology abnormal [Not Recovered/Not Resolved]
  - COVID-19 [Not Recovered/Not Resolved]
  - Adenovirus infection [Unknown]
  - BK virus infection [Unknown]
  - Gastrointestinal mucormycosis [Not Recovered/Not Resolved]
  - Off label use [Unknown]
  - Drug intolerance [Unknown]

NARRATIVE: CASE EVENT DATE: 20230413
